FAERS Safety Report 15585099 (Version 1)
Quarter: 2018Q4

REPORT INFORMATION
  Report Type: Spontaneous
  Country: US (occurrence: US)
  Receive Date: 20181105
  Receipt Date: 20181105
  Transmission Date: 20190205
  Serious: No
  Sender: FDA-Public Use
  Company Number: US-BAYER-2018-196918

PATIENT
  Sex: Female

DRUGS (1)
  1. MIRENA [Suspect]
     Active Substance: LEVONORGESTREL
     Dosage: 20 MCG/24HR, CONT
     Route: 015
     Dates: start: 201806

REACTIONS (6)
  - Procedural pain [None]
  - Depressed mood [None]
  - Feeling abnormal [None]
  - Weight increased [None]
  - Emotional disorder [None]
  - Medical device pain [None]

NARRATIVE: CASE EVENT DATE: 201806
